FAERS Safety Report 17892576 (Version 1)
Quarter: 2020Q2

REPORT INFORMATION
  Report Type: Spontaneous
  Country: GB (occurrence: GB)
  Receive Date: 20200613
  Receipt Date: 20200613
  Transmission Date: 20200714
  Serious: Yes (Disabling)
  Sender: FDA-Public Use
  Company Number: GB-AUROBINDO-AUR-APL-2020-028831

PATIENT
  Age: 52 Year
  Sex: Male
  Weight: 80 kg

DRUGS (4)
  1. QUETIAPINE. [Concomitant]
     Active Substance: QUETIAPINE
     Indication: PRODUCT USED FOR UNKNOWN INDICATION
     Dosage: UNK, ONE NOCTE
     Route: 065
     Dates: start: 20200522
  2. MIRTAZAPINE FILM-COATED TABLET [Suspect]
     Active Substance: MIRTAZAPINE
     Indication: PRODUCT USED FOR UNKNOWN INDICATION
     Dosage: 15 MILLIGRAM, TAKE ONE TABLET EACH NIGHT
     Route: 065
     Dates: start: 20200522
  3. SERTRALINE [Concomitant]
     Active Substance: SERTRALINE HYDROCHLORIDE
     Indication: PRODUCT USED FOR UNKNOWN INDICATION
     Dosage: UNK, ONCE A DAY (TAKE ONE TABLET)
     Route: 065
     Dates: start: 20200401, end: 20200429
  4. TRAZODONE [Concomitant]
     Active Substance: TRAZODONE HYDROCHLORIDE
     Indication: PRODUCT USED FOR UNKNOWN INDICATION
     Dosage: UNK, AT NIGHT INCREASING FROM 50MGS- 100MGS TO 150MS
     Route: 065
     Dates: start: 20200529

REACTIONS (1)
  - Dysphemia [Recovered/Resolved]

NARRATIVE: CASE EVENT DATE: 20200529
